FAERS Safety Report 26085580 (Version 1)
Quarter: 2025Q4

REPORT INFORMATION
  Report Type: Spontaneous
  Country: US (occurrence: US)
  Receive Date: 20251125
  Receipt Date: 20251125
  Transmission Date: 20260118
  Serious: No
  Sender: CSL BEHRING
  Company Number: US-BEH-2025225281

PATIENT
  Sex: Female

DRUGS (1)
  1. HIZENTRA [Suspect]
     Active Substance: HUMAN IMMUNOGLOBULIN G
     Dosage: 40 MG, QW
     Route: 065

REACTIONS (2)
  - Infusion site mass [Unknown]
  - Peripheral swelling [Unknown]

NARRATIVE: CASE EVENT DATE: 20250101
